FAERS Safety Report 23318044 (Version 1)
Quarter: 2023Q4

REPORT INFORMATION
  Report Type: Spontaneous
  Country: US (occurrence: None)
  Receive Date: 20231219
  Receipt Date: 20231219
  Transmission Date: 20240110
  Serious: Yes (Hospitalization)
  Sender: FDA-Public Use
  Company Number: US-ROCHE-3478294

PATIENT
  Sex: Female

DRUGS (24)
  1. XOLAIR [Suspect]
     Active Substance: OMALIZUMAB
     Indication: Asthma
     Dosage: STRENGTH:150MG/ML, INJECT 2 SYRINGES
     Route: 058
     Dates: start: 20230329
  2. XOLAIR [Suspect]
     Active Substance: OMALIZUMAB
  3. XOLAIR [Suspect]
     Active Substance: OMALIZUMAB
  4. ADVAIR DISKUS [Concomitant]
     Active Substance: FLUTICASONE PROPIONATE\SALMETEROL XINAFOATE
  5. APAP;CODEINE [Concomitant]
  6. AVELOX [Concomitant]
     Active Substance: MOXIFLOXACIN HYDROCHLORIDE
  7. AZITHROMYCIN [Concomitant]
     Active Substance: AZITHROMYCIN
  8. CYCLOBENZAPRINE [Concomitant]
     Active Substance: CYCLOBENZAPRINE
  9. DIAZEPAM [Concomitant]
     Active Substance: DIAZEPAM
  10. EPIPEN [Concomitant]
     Active Substance: EPINEPHRINE
  11. FLECTOR [Concomitant]
     Active Substance: DICLOFENAC EPOLAMINE
  12. ACETAMINOPHEN\HYDROCODONE [Concomitant]
     Active Substance: ACETAMINOPHEN\HYDROCODONE
  13. INDOMETHACIN [Concomitant]
     Active Substance: INDOMETHACIN
  14. KETOROLAC [Concomitant]
     Active Substance: KETOROLAC TROMETHAMINE
  15. LEVAQUIN [Concomitant]
     Active Substance: LEVOFLOXACIN
  16. METHYLPREDNISOLONE ACETATE [Concomitant]
     Active Substance: METHYLPREDNISOLONE ACETATE
  17. MOMETASONE [Concomitant]
     Active Substance: MOMETASONE
  18. MUPIROCIN [Concomitant]
     Active Substance: MUPIROCIN
  19. ONDANSETRON [Concomitant]
     Active Substance: ONDANSETRON
  20. PULMICORT TURBUHALER [Concomitant]
     Active Substance: BUDESONIDE
  21. SULFAMETHOXAZOLE\TRIMETHOPRIM [Concomitant]
     Active Substance: SULFAMETHOXAZOLE\TRIMETHOPRIM
  22. TRAMADOL [Concomitant]
     Active Substance: TRAMADOL\TRAMADOL HYDROCHLORIDE
  23. VERAMYST [Concomitant]
     Active Substance: FLUTICASONE FUROATE
  24. XOPENEX HFA [Concomitant]
     Active Substance: LEVALBUTEROL TARTRATE

REACTIONS (2)
  - Pneumonia [Unknown]
  - Asthma [Unknown]
